FAERS Safety Report 6701484-6 (Version None)
Quarter: 2010Q2

REPORT INFORMATION
  Report Type: 
  Country: None (occurrence: None)
  Receive Date: 20100429
  Receipt Date: 20100419
  Transmission Date: 20101027
  Serious: Yes (Other)
  Sender: FDA-Public Use
  Company Number: US-JNJFOC-20100209283

PATIENT
  Sex: Male
  Weight: 102.06 kg

DRUGS (4)
  1. STELARA [Suspect]
     Indication: PSORIASIS
     Route: 058
  2. STELARA [Suspect]
     Route: 058
  3. LIPITOR [Concomitant]
     Indication: BLOOD CHOLESTEROL
  4. METFORMIN [Concomitant]
     Indication: BLOOD GLUCOSE ABNORMAL

REACTIONS (3)
  - DIABETES MELLITUS [None]
  - THROAT IRRITATION [None]
  - URINE OUTPUT INCREASED [None]
